FAERS Safety Report 7410284-3 (Version None)
Quarter: 2011Q2

REPORT INFORMATION
  Report Type: 
  Country: None (occurrence: None)
  Receive Date: 20110412
  Receipt Date: 20110318
  Transmission Date: 20111010
  Serious: Yes (Hospitalization)
  Sender: FDA-Public Use
  Company Number: US-BAYER-201019454NA

PATIENT
  Age: 37 Year
  Sex: Female
  Weight: 58.957 kg

DRUGS (7)
  1. ALBUTEROL [Concomitant]
     Dosage: UNK
     Dates: start: 19990101
  2. ACCOLATE [Concomitant]
     Dosage: UNK
     Dates: start: 20070601, end: 20070901
  3. IBUPROFEN [Concomitant]
     Dosage: UNK UNK, PRN
  4. NAPROXEN [Concomitant]
     Dosage: UNK UNK, PRN
  5. YASMIN [Suspect]
     Indication: CONTRACEPTION
     Dosage: UNK
     Dates: start: 20070501, end: 20071001
  6. AVELOX [Concomitant]
     Dosage: UNK
     Dates: start: 20071011
  7. SINGULAIR [Concomitant]
     Dosage: UNK
     Dates: start: 20070530

REACTIONS (1)
  - PULMONARY EMBOLISM [None]
